FAERS Safety Report 8832129 (Version 2)
Quarter: 2015Q2

REPORT INFORMATION
  Report Type: Report from Study
  Country: US (occurrence: US)
  Receive Date: 20121009
  Receipt Date: 20150629
  Transmission Date: 20150821
  Serious: Yes (Death, Other)
  Sender: FDA-Public Use
  Company Number: US-ROCHE-1122945

PATIENT
  Sex: Male

DRUGS (10)
  1. CIMETIDINE [Concomitant]
     Active Substance: CIMETIDINE
     Route: 048
  2. PLAQUENIL [Concomitant]
     Active Substance: HYDROXYCHLOROQUINE SULFATE
     Route: 065
  3. BENADRYL [Concomitant]
     Active Substance: DIPHENHYDRAMINE HYDROCHLORIDE
     Route: 048
  4. HEPARIN [Concomitant]
     Active Substance: HEPARIN SODIUM
     Route: 065
  5. VIDAZA [Concomitant]
     Active Substance: AZACITIDINE
  6. RITUXAN [Suspect]
     Active Substance: RITUXIMAB
     Indication: THROMBOCYTOPENIA
     Route: 042
     Dates: start: 20060116
  7. TYLENOL [Concomitant]
     Active Substance: ACETAMINOPHEN
     Route: 048
  8. ARANESP [Concomitant]
     Active Substance: DARBEPOETIN ALFA
  9. TAGAMET [Concomitant]
     Active Substance: CIMETIDINE
     Route: 048
  10. SOLU-MEDROL [Concomitant]
     Active Substance: METHYLPREDNISOLONE SODIUM SUCCINATE
     Route: 042

REACTIONS (12)
  - Haemorrhage [Unknown]
  - Chills [Unknown]
  - Pyrexia [Unknown]
  - Death [Fatal]
  - Gait disturbance [Unknown]
  - Dyspnoea [Unknown]
  - Cough [Unknown]
  - Myelodysplastic syndrome [Unknown]
  - Off label use [Unknown]
  - Pancytopenia [Unknown]
  - Contusion [Unknown]
  - Fatigue [Unknown]
